FAERS Safety Report 7910888-5 (Version None)
Quarter: 2011Q4

REPORT INFORMATION
  Report Type: 
  Country: None (occurrence: None)
  Receive Date: 20111114
  Receipt Date: 20111108
  Transmission Date: 20120403
  Serious: No
  Sender: FDA-Public Use
  Company Number: US-BIOGENIDEC-2011BI006922

PATIENT
  Age: 50 Year
  Sex: Female

DRUGS (2)
  1. TYSABRI [Suspect]
     Indication: MULTIPLE SCLEROSIS
     Route: 042
     Dates: start: 20080811, end: 20110401
  2. TYSABRI [Suspect]
     Route: 042
     Dates: start: 20110801

REACTIONS (9)
  - URINARY TRACT INFECTION [None]
  - THROMBOSIS IN DEVICE [None]
  - PYREXIA [None]
  - INFUSION SITE PHLEBITIS [None]
  - BLOOD THYROID STIMULATING HORMONE DECREASED [None]
  - KIDNEY INFECTION [None]
  - FATIGUE [None]
  - PAIN IN EXTREMITY [None]
  - THYROXINE INCREASED [None]
